FAERS Safety Report 12922656 (Version 1)
Quarter: 2016Q4

REPORT INFORMATION
  Report Type: Spontaneous
  Country: FR (occurrence: FR)
  Receive Date: 20161109
  Receipt Date: 20161109
  Transmission Date: 20170207
  Serious: Yes (Hospitalization)
  Sender: FDA-Public Use
  Company Number: FR-ABBVIE-16P-056-1768073-00

PATIENT
  Age: 65 Year
  Sex: Female

DRUGS (2)
  1. LAMALINE [Concomitant]
     Active Substance: ACETAMINOPHEN\CAFFEINE\OPIUM
     Indication: PRODUCT USED FOR UNKNOWN INDICATION
     Dosage: 1 TO 2 TABLETS/DAY
  2. HUMIRA [Suspect]
     Active Substance: ADALIMUMAB
     Indication: SAPHO SYNDROME
     Route: 058
     Dates: start: 201605, end: 20160919

REACTIONS (6)
  - Scar [Unknown]
  - Injection site erythema [Unknown]
  - Rash erythematous [Unknown]
  - SAPHO syndrome [Recovering/Resolving]
  - Peripheral arthritis [Unknown]
  - Paradoxical drug reaction [Recovering/Resolving]

NARRATIVE: CASE EVENT DATE: 2016
